FAERS Safety Report 5910501-2 (Version None)
Quarter: 2008Q4

REPORT INFORMATION
  Report Type: 
  Country: None (occurrence: None)
  Receive Date: 20081007
  Receipt Date: 20080207
  Transmission Date: 20090506
  Serious: Yes (Death)
  Sender: FDA-Public Use
  Company Number: US-ASTRAZENECA-2008UW02689

PATIENT
  Age: 84 Year
  Sex: Female
  Weight: 68 kg

DRUGS (1)
  1. ARIMIDEX [Suspect]
     Indication: BREAST CANCER METASTATIC
     Route: 048
     Dates: start: 20070201

REACTIONS (1)
  - DISEASE PROGRESSION [None]
